FAERS Safety Report 11272988 (Version 1)
Quarter: 2015Q2

REPORT INFORMATION
  Report Type: Spontaneous
  Country: US (occurrence: None)
  Receive Date: 20150625
  Receipt Date: 20150625
  Transmission Date: 20150821
  Serious: No
  Sender: FDA-Public Use
  Company Number: A-US2015-111815

PATIENT
  Age: 50 Year
  Sex: Female

DRUGS (20)
  1. APAP W/CODEINE (CODEINE, PARACETAMOL) [Concomitant]
  2. ERYTHROMYCIN. [Concomitant]
     Active Substance: ERYTHROMYCIN
  3. ADCIRCA [Concomitant]
     Active Substance: TADALAFIL
  4. CARISOPRODOL. [Concomitant]
     Active Substance: CARISOPRODOL
  5. HYDROCODONE/ACETAMINOPHEN (HYDROCODONE, PARACETAMOL) [Concomitant]
  6. LORAZEPAM. [Concomitant]
     Active Substance: LORAZEPAM
  7. LISINOPRIL. [Concomitant]
     Active Substance: LISINOPRIL
  8. VENTOLIN HFA [Concomitant]
     Active Substance: ALBUTEROL SULFATE
  9. LEVOTHYROXINE [Concomitant]
     Active Substance: LEVOTHYROXINE
  10. CLINDAMYCIN [Concomitant]
     Active Substance: CLINDAMYCIN\CLINDAMYCIN PHOSPHATE
  11. FERROUS SULFATE [Concomitant]
     Active Substance: FERROUS SULFATE\FERROUS SULFATE, DRIED
  12. FAMOTIDINE. [Concomitant]
     Active Substance: FAMOTIDINE
  13. ALPRAZOLAM. [Concomitant]
     Active Substance: ALPRAZOLAM
  14. VITAMIN C [Concomitant]
     Active Substance: ASCORBIC ACID
  15. SPIRONOLACTONE. [Concomitant]
     Active Substance: SPIRONOLACTONE
  16. DIGOXIN. [Concomitant]
     Active Substance: DIGOXIN
  17. QVAR (BECLOMETASONE DIPROPIONATE) [Concomitant]
  18. OPSUMIT [Suspect]
     Active Substance: MACITENTAN
     Indication: PULMONARY ARTERIAL HYPERTENSION
     Route: 048
     Dates: start: 20140502
  19. IRON [Concomitant]
     Active Substance: IRON
  20. RANITIDINE [Concomitant]
     Active Substance: RANITIDINE\RANITIDINE HYDROCHLORIDE

REACTIONS (1)
  - Oligomenorrhoea [None]
